FAERS Safety Report 20807166 (Version 1)
Quarter: 2022Q2

REPORT INFORMATION
  Report Type: Report from Study
  Country: ZA (occurrence: ZA)
  Receive Date: 20220510
  Receipt Date: 20220510
  Transmission Date: 20220721
  Serious: Yes (Hospitalization)
  Sender: FDA-Public Use
  Company Number: ZA-JNJFOC-20180705198

PATIENT
  Age: 41 Year
  Sex: Female
  Weight: 114 kg

DRUGS (2)
  1. ESKETAMINE [Suspect]
     Active Substance: ESKETAMINE
     Indication: Depression
     Dates: start: 20170810, end: 20180702
  2. ESKETAMINE [Suspect]
     Active Substance: ESKETAMINE
     Dates: start: 20220209, end: 20220209

REACTIONS (1)
  - Heavy menstrual bleeding [Recovered/Resolved]

NARRATIVE: CASE EVENT DATE: 20180703
